FAERS Safety Report 20725951 (Version 6)
Quarter: 2022Q2

REPORT INFORMATION
  Report Type: Report from Study
  Country: US (occurrence: US)
  Receive Date: 20220419
  Receipt Date: 20220531
  Transmission Date: 20220720
  Serious: Yes (Hospitalization, Other)
  Sender: FDA-Public Use
  Company Number: US-PFIZER INC-202200574587

PATIENT
  Age: 24 Year
  Sex: Male
  Weight: 63.18 kg

DRUGS (7)
  1. CYTARABINE [Suspect]
     Active Substance: CYTARABINE
     Indication: B precursor type acute leukaemia
     Dosage: 75 MG/M2 IV OR SC ON DAYS 1-4, 8-11, 29-32, AND 36-39
  2. METHOTREXATE SODIUM [Suspect]
     Active Substance: METHOTREXATE SODIUM
     Indication: B precursor type acute leukaemia
     Dosage: 15 MG IT ON DAYS 1, 8, 15, AND 22 [OMIT DOSE ON DAY 15 AND 22 FOR CNS3 PATIENTS]
     Route: 037
  3. INOTUZUMAB OZOGAMICIN [Suspect]
     Active Substance: INOTUZUMAB OZOGAMICIN
     Indication: B precursor type acute leukaemia
     Dosage: 0.5 MG/M2 /DAY IV ON DAY 1, 8 AND 15 OF A 28-DAY CYCLE
     Route: 042
     Dates: end: 20220110
  4. VINCRISTINE SULFATE [Suspect]
     Active Substance: VINCRISTINE SULFATE
     Indication: B precursor type acute leukaemia
     Dosage: 1.5 MG/M2 (MAXIMUM 2 MG) IV ON DAYS 15, 22, 43, AND 50
     Route: 042
  5. CYCLOPHOSPHAMIDE [Suspect]
     Active Substance: CYCLOPHOSPHAMIDE
     Indication: B precursor type acute leukaemia
     Dosage: 1000 MG/M2 IV ON DAY 1 AND 29
     Route: 042
  6. RITUXIMAB [Suspect]
     Active Substance: RITUXIMAB
     Indication: B precursor type acute leukaemia
     Dosage: 375 MG/M2 IV ON DAYS 1 AND 8 AND THEN AGAIN ON DAYS 29 AND 36
     Route: 042
  7. MERCAPTOPURINE [Suspect]
     Active Substance: MERCAPTOPURINE
     Indication: B precursor type acute leukaemia
     Dosage: 60 MG/M2 PO ON DAYS 1-14 AND 29-42
     Route: 048

REACTIONS (3)
  - Febrile neutropenia [Not Recovered/Not Resolved]
  - Platelet count decreased [Not Recovered/Not Resolved]
  - Anaemia [Not Recovered/Not Resolved]

NARRATIVE: CASE EVENT DATE: 20220406
